FAERS Safety Report 24458899 (Version 1)
Quarter: 2024Q4

REPORT INFORMATION
  Report Type: Report from Study
  Country: US (occurrence: US)
  Receive Date: 20241018
  Receipt Date: 20241018
  Transmission Date: 20250114
  Serious: No
  Sender: ROCHE
  Company Number: US-ROCHE-3526556

PATIENT
  Age: 63 Year
  Sex: Male
  Weight: 99.79 kg

DRUGS (9)
  1. RITUXAN [Suspect]
     Active Substance: RITUXIMAB
     Indication: Nephritic syndrome
     Route: 041
     Dates: start: 20220720, end: 20221129
  2. RITUXAN [Suspect]
     Active Substance: RITUXIMAB
     Indication: Nephrotic syndrome
  3. REPATHA [Concomitant]
     Active Substance: EVOLOCUMAB
     Indication: Blood cholesterol increased
     Dosage: 1 EVERY 14 DAYS INJECTION INTO STOMACH WITH A PEN DEVICE
     Route: 058
     Dates: start: 20240303
  4. ASPIRIN [Concomitant]
     Active Substance: ASPIRIN
  5. BUMETANIDE [Concomitant]
     Active Substance: BUMETANIDE
  6. LUNESTA [Concomitant]
     Active Substance: ESZOPICLONE
  7. TACROLIMUS [Concomitant]
     Active Substance: TACROLIMUS
  8. OLMESARTAN [Concomitant]
     Active Substance: OLMESARTAN
  9. MAGNESIUM [Concomitant]
     Active Substance: MAGNESIUM

REACTIONS (3)
  - Off label use [Unknown]
  - Nephrotic syndrome [Not Recovered/Not Resolved]
  - Proteinuria [Not Recovered/Not Resolved]

NARRATIVE: CASE EVENT DATE: 20220720
